FAERS Safety Report 16954756 (Version 3)
Quarter: 2019Q4

REPORT INFORMATION
  Report Type: Report from Study
  Country: None (occurrence: CH)
  Receive Date: 20191024
  Receipt Date: 20191220
  Transmission Date: 20200122
  Serious: Yes (Hospitalization)
  Sender: FDA-Public Use
  Company Number: CH-ABBVIE-19K-151-2972602-00

PATIENT
  Age: 79 Year
  Sex: Male

DRUGS (4)
  1. DUODOPA [Suspect]
     Active Substance: CARBIDOPA\LEVODOPA
     Dosage: MD 7ML, CRD 2.7 ML/H, CND 2.2, ED1.8ML 24H THERAPY
     Route: 050
     Dates: start: 20180612
  2. DUODOPA [Suspect]
     Active Substance: CARBIDOPA\LEVODOPA
     Indication: PARKINSON^S DISEASE
     Route: 050
     Dates: start: 20151027, end: 20170419
  3. DUODOPA [Suspect]
     Active Substance: CARBIDOPA\LEVODOPA
     Route: 050
  4. DUODOPA [Suspect]
     Active Substance: CARBIDOPA\LEVODOPA
     Dosage: MD 7ML, CRD 2.5 ML/H, CRN 2.1ML/H, ED1.5ML  24H THERAPY
     Route: 050
     Dates: start: 20170419, end: 20180612

REACTIONS (5)
  - Dysphagia [Recovered/Resolved]
  - Cystitis [Recovered/Resolved]
  - Parkinson^s disease [Unknown]
  - Pneumonia aspiration [Recovered/Resolved]
  - Device issue [Recovered/Resolved]

NARRATIVE: CASE EVENT DATE: 201910
